FAERS Safety Report 18107383 (Version 1)
Quarter: 2020Q3

REPORT INFORMATION
  Report Type: Spontaneous
  Country: JP (occurrence: JP)
  Receive Date: 20200804
  Receipt Date: 20200804
  Transmission Date: 20201103
  Serious: Yes (Other)
  Sender: FDA-Public Use
  Company Number: JP-PFIZER INC-2020290372

PATIENT
  Weight: 1.94 kg

DRUGS (12)
  1. TRASTUZUMAB. [Suspect]
     Active Substance: TRASTUZUMAB
     Indication: GASTRIC CANCER
     Dosage: UNK
     Route: 064
  2. ACETAMINOPHEN. [Suspect]
     Active Substance: ACETAMINOPHEN
     Dosage: 4000 MG, DAILY
     Route: 064
  3. PREGABALIN. [Suspect]
     Active Substance: PREGABALIN
     Dosage: 150 MG, DAILY
     Route: 064
  4. ACETAMINOPHEN. [Suspect]
     Active Substance: ACETAMINOPHEN
     Indication: BACK PAIN
     Dosage: 2400 MG, DAILY
     Route: 064
  5. FENTANYL. [Suspect]
     Active Substance: FENTANYL
     Dosage: 24 MCG/HR
     Route: 064
  6. TS?1 [Suspect]
     Active Substance: GIMERACIL\OTERACIL\TEGAFUR
     Indication: GASTRIC CANCER
     Dosage: UNK
     Route: 064
  7. PREGABALIN. [Suspect]
     Active Substance: PREGABALIN
     Indication: NEURALGIA
     Dosage: UNK
     Route: 064
  8. OXALIPLATIN. [Suspect]
     Active Substance: OXALIPLATIN
     Indication: GASTRIC CANCER
     Dosage: UNK
     Route: 064
  9. FENTANYL. [Suspect]
     Active Substance: FENTANYL
     Indication: BACK PAIN
     Dosage: 8 MCG/HR
     Route: 064
  10. PREGABALIN. [Suspect]
     Active Substance: PREGABALIN
     Dosage: 100 MG, DAILY
     Route: 064
  11. OXYCODONE [Suspect]
     Active Substance: OXYCODONE
     Indication: BACK PAIN
     Dosage: 10 MG, DAILY
     Route: 064
  12. FENTANYL. [Suspect]
     Active Substance: FENTANYL
     Dosage: 16 MCG/HR
     Route: 064

REACTIONS (2)
  - Cyanosis neonatal [Unknown]
  - Maternal exposure during pregnancy [Unknown]
